FAERS Safety Report 9387484 (Version 1)
Quarter: 2013Q3

REPORT INFORMATION
  Report Type: Spontaneous
  Country: US (occurrence: US)
  Receive Date: 20130708
  Receipt Date: 20130708
  Transmission Date: 20140515
  Serious: No
  Sender: FDA-Public Use
  Company Number: US-PFIZER INC-2013198538

PATIENT
  Sex: Female

DRUGS (2)
  1. NORVASC [Suspect]
     Dosage: 10 MG, ONCE A DAY
     Dates: start: 201306
  2. NORVASC [Suspect]
     Dosage: UNK, ONCE A DAY
     Dates: end: 201306

REACTIONS (3)
  - Local swelling [Unknown]
  - Local swelling [Unknown]
  - Joint swelling [Unknown]
